FAERS Safety Report 26101047 (Version 1)
Quarter: 2025Q4

REPORT INFORMATION
  Report Type: Spontaneous
  Country: GB (occurrence: GB)
  Receive Date: 20251128
  Receipt Date: 20251128
  Transmission Date: 20260117
  Serious: Yes (Other)
  Sender: AUROBINDO
  Company Number: GB-MHRA-MED-202511170356389680-KGLFP

PATIENT
  Age: 69 Year
  Sex: Female
  Weight: 64 kg

DRUGS (2)
  1. APIXABAN [Suspect]
     Active Substance: APIXABAN
     Indication: Paroxysmal arrhythmia
     Dosage: 5 MILLIGRAM, TWO TIMES A DAY (5 MG TWICE A DAY)
     Route: 065
     Dates: start: 20251006
  2. LATANOPROST\TIMOLOL [Concomitant]
     Active Substance: LATANOPROST\TIMOLOL
     Indication: Glaucoma
     Dosage: UNK
     Route: 065

REACTIONS (3)
  - Genital herpes [Not Recovered/Not Resolved]
  - Condition aggravated [Unknown]
  - Sleep disorder [Unknown]
